FAERS Safety Report 12404158 (Version 1)
Quarter: 2016Q2

REPORT INFORMATION
  Report Type: Spontaneous
  Country: CY (occurrence: CY)
  Receive Date: 20160525
  Receipt Date: 20160525
  Transmission Date: 20160815
  Serious: Yes (Hospitalization)
  Sender: FDA-Public Use
  Company Number: CY-GILEAD-2016-0214622

PATIENT
  Age: 67 Year
  Sex: Male
  Weight: 74 kg

DRUGS (7)
  1. ZEFFIX [Concomitant]
     Active Substance: LAMIVUDINE
  2. RITUXIMAB [Concomitant]
     Active Substance: RITUXIMAB
  3. MABTHERA [Concomitant]
     Active Substance: RITUXIMAB
  4. SEPTRIN [Concomitant]
     Active Substance: SULFAMETHOXAZOLE\TRIMETHOPRIM
  5. METOPROLOL. [Concomitant]
     Active Substance: METOPROLOL
  6. ZYDELIG [Suspect]
     Active Substance: IDELALISIB
     Indication: CHRONIC LYMPHOCYTIC LEUKAEMIA
     Dosage: 150 MG, BID
     Route: 048
     Dates: start: 20160412, end: 20160423
  7. ZYDELIG [Suspect]
     Active Substance: IDELALISIB
     Dosage: UNK
     Route: 048
     Dates: start: 20160429

REACTIONS (20)
  - Generalised oedema [Recovered/Resolved]
  - Dyspnoea [Recovered/Resolved]
  - Dyspnoea [Recovered/Resolved]
  - Tachycardia [Recovered/Resolved]
  - Dry mouth [Recovered/Resolved]
  - Generalised oedema [Recovered/Resolved]
  - Choking sensation [Recovered/Resolved]
  - Pyrexia [Recovered/Resolved]
  - Hypersensitivity [Recovered/Resolved]
  - Dry mouth [Recovered/Resolved]
  - Pyrexia [Recovered/Resolved]
  - Erythema [Recovered/Resolved]
  - Ocular hyperaemia [Recovered/Resolved]
  - Flatulence [Recovered/Resolved]
  - Choking sensation [Recovered/Resolved]
  - Flatulence [Recovered/Resolved]
  - Hypersensitivity [Recovered/Resolved]
  - Erythema [Recovered/Resolved]
  - Ocular hyperaemia [Recovered/Resolved]
  - Tachycardia [Recovered/Resolved]

NARRATIVE: CASE EVENT DATE: 20160422
